FAERS Safety Report 5360954-6 (Version None)
Quarter: 2007Q2

REPORT INFORMATION
  Report Type: 
  Country: None (occurrence: None)
  Receive Date: 20070618
  Receipt Date: 20070615
  Transmission Date: 20071010
  Serious: Yes (Death, Hospitalization)
  Sender: FDA-Public Use
  Company Number: MX-BOEHRINGER INGELHEIM PHARMACEUTICALS, INC.-2007-BP-07751MX

PATIENT
  Sex: Male
  Weight: 68 kg

DRUGS (3)
  1. TIPRANAVIR / RITONAVIR CAPSULES [Suspect]
     Route: 048
     Dates: start: 20050530
  2. ZIDOVUDINE [Concomitant]
     Indication: HIV INFECTION
     Route: 048
     Dates: start: 20050530
  3. ANTIPHYMIC  DRUG [Concomitant]
     Indication: TUBERCULOSIS

REACTIONS (8)
  - CARDIO-RESPIRATORY ARREST [None]
  - DIARRHOEA [None]
  - HAEMOPTYSIS [None]
  - ORAL CANDIDIASIS [None]
  - PNEUMONIA [None]
  - PYREXIA [None]
  - TACHYCARDIA [None]
  - TACHYPNOEA [None]
